FAERS Safety Report 8834680 (Version 3)
Quarter: 2013Q1

REPORT INFORMATION
  Report Type: Spontaneous
  Country: SI (occurrence: SI)
  Receive Date: 20121010
  Receipt Date: 20130124
  Transmission Date: 20140127
  Serious: Yes (Other)
  Sender: FDA-Public Use
  Company Number: SI-JNJFOC-20121000663

PATIENT
  Age: 59 Year
  Sex: Female

DRUGS (3)
  1. XARELTO [Suspect]
     Indication: THROMBOSIS PROPHYLAXIS
     Route: 048
  2. XARELTO [Suspect]
     Indication: HIP ARTHROPLASTY
     Route: 048
  3. VANCOMYCIN [Concomitant]
     Indication: INFECTION
     Route: 065

REACTIONS (4)
  - Wound haemorrhage [Recovering/Resolving]
  - Infection [Unknown]
  - Rash [Unknown]
  - Hepatobiliary scan abnormal [Unknown]
